FAERS Safety Report 9467142 (Version 1)
Quarter: 2013Q3

REPORT INFORMATION
  Report Type: Spontaneous
  Country: JP (occurrence: JP)
  Receive Date: 20130820
  Receipt Date: 20130820
  Transmission Date: 20140515
  Serious: Yes (Hospitalization)
  Sender: FDA-Public Use
  Company Number: PHHY2013JP085337

PATIENT
  Age: 55 Year
  Sex: Male

DRUGS (1)
  1. ARGATROBAN [Suspect]
     Indication: ANTICOAGULANT THERAPY
     Dosage: 0.3 MG/KG, UNK
     Route: 042

REACTIONS (3)
  - Coagulopathy [Recovered/Resolved]
  - Coagulation time prolonged [Recovered/Resolved]
  - Haemorrhage [Recovered/Resolved]
